FAERS Safety Report 8317678-2 (Version None)
Quarter: 2012Q2

REPORT INFORMATION
  Report Type: 
  Country: None (occurrence: None)
  Receive Date: 20120427
  Receipt Date: 20111110
  Transmission Date: 20120825
  Serious: No
  Sender: FDA-Public Use
  Company Number: US-GLAXOSMITHKLINE-A0952621A

PATIENT
  Age: 65 Year
  Sex: Female

DRUGS (4)
  1. TOPAMAX [Concomitant]
  2. HORMONE REPLACEMENT THERAPY [Concomitant]
  3. NARATRIPTAN [Suspect]
     Indication: MIGRAINE
     Dosage: 2.5MG AS REQUIRED
     Route: 048
  4. SYNTHROID [Concomitant]

REACTIONS (1)
  - DRUG EFFECT DECREASED [None]
